FAERS Safety Report 11966014 (Version 2)
Quarter: 2016Q4

REPORT INFORMATION
  Report Type: Spontaneous
  Country: US (occurrence: US)
  Receive Date: 20160127
  Receipt Date: 20161216
  Transmission Date: 20170206
  Serious: Yes (Hospitalization)
  Sender: FDA-Public Use
  Company Number: US-SA-2016SA013717

PATIENT
  Age: 45 Year
  Sex: Female
  Weight: 99 kg

DRUGS (33)
  1. FOLIC ACID. [Concomitant]
     Active Substance: FOLIC ACID
     Route: 048
     Dates: start: 20151223
  2. URSODIOL. [Concomitant]
     Active Substance: URSODIOL
     Dosage: 300 MG ORAL CAPSULE; 1 CAPS ORALLY TWO TIMES A DAY
     Route: 048
     Dates: start: 20151223
  3. ACETAMINOPHEN. [Concomitant]
     Active Substance: ACETAMINOPHEN
     Dates: end: 2016
  4. BACLOFEN. [Concomitant]
     Active Substance: BACLOFEN
     Dates: end: 2016
  5. SODIUM CHLORIDE. [Concomitant]
     Active Substance: SODIUM CHLORIDE
     Dosage: NASAL SPRAY
     Dates: end: 2016
  6. CLOFARABINE [Suspect]
     Active Substance: CLOFARABINE
     Indication: MYELODYSPLASTIC SYNDROME
     Route: 042
     Dates: start: 20151201, end: 20151204
  7. TACROLIMUS. [Concomitant]
     Active Substance: TACROLIMUS
     Dosage: 0.5 MG ORAL CAPSULE ;( 3 CAPSULES IN THE MORNING AND 2 CAPSULES IN THE EVNENING)
     Route: 048
     Dates: start: 20151223
  8. DIPHENOXYLATE/ATROPINE [Concomitant]
     Dates: end: 2016
  9. HYDROMORPHONE [Concomitant]
     Active Substance: HYDROMORPHONE
     Dates: end: 2016
  10. LORAZEPAM. [Concomitant]
     Active Substance: LORAZEPAM
     Dates: end: 2016
  11. CLOFARABINE [Suspect]
     Active Substance: CLOFARABINE
     Indication: BONE MARROW CONDITIONING REGIMEN
     Route: 042
     Dates: start: 20151201, end: 20151204
  12. HYDROXYZINE [Concomitant]
     Active Substance: HYDROXYZINE\HYDROXYZINE HYDROCHLORIDE
     Dates: end: 2016
  13. ACYCLOVIR. [Concomitant]
     Active Substance: ACYCLOVIR
     Route: 048
     Dates: start: 20151223
  14. DIPHENHYDRAMINE. [Concomitant]
     Active Substance: DIPHENHYDRAMINE
     Dates: end: 2016
  15. MAGNESIUM SULFATE. [Concomitant]
     Active Substance: MAGNESIUM SULFATE
     Dates: end: 2016
  16. SIMETHICONE (DIMETHICONE) [Concomitant]
     Active Substance: DIMETHICONE
     Dates: end: 2016
  17. FAMOTIDINE. [Concomitant]
     Active Substance: FAMOTIDINE
     Route: 048
     Dates: start: 20151223
  18. SIROLIMUS. [Concomitant]
     Active Substance: SIROLIMUS
     Route: 048
     Dates: start: 20151223
  19. VITAMIN D3 [Concomitant]
     Active Substance: CHOLECALCIFEROL
     Dosage: 2 CAPSULES
     Route: 048
     Dates: start: 20150901
  20. ONDANSETRON [Concomitant]
     Active Substance: ONDANSETRON
     Route: 042
     Dates: end: 2016
  21. MAGNESIUM [Concomitant]
     Active Substance: MAGNESIUM
     Route: 048
     Dates: start: 20151223
  22. CARBOXYMETHYLCELLULOSE [Concomitant]
     Active Substance: CARBOXYMETHYLCELLULOSE
     Dates: end: 2016
  23. POTASSIUM CHLORIDE. [Concomitant]
     Active Substance: POTASSIUM CHLORIDE
     Route: 042
     Dates: end: 2016
  24. BACTRIM DS [Concomitant]
     Active Substance: SULFAMETHOXAZOLE\TRIMETHOPRIM
     Dosage: 800 MG-160 MG : 1 TABLET ORALLY TWICE A DAY EVERY SATURDAY AND SUNDAY ONLY
     Route: 048
     Dates: start: 20160104
  25. BIOTENE NOS [Concomitant]
     Active Substance: CETYLPYRIDINIUM CHLORIDE OR SODIUM FLUORIDE OR SODIUM MONOFLUOROPHOSPHATE OR GLUCOSE OXIDASE\LACTOFERRIN\LACTOPEROXIDASE BOVINE\LYSOZYME
     Dosage: SWISH AND SPIT
     Route: 048
     Dates: start: 20151223
  26. CLOTRIMAZOLE. [Concomitant]
     Active Substance: CLOTRIMAZOLE
     Dosage: 10M G ORAL LOZENGE, 1 LOZENGE ORALLY 4 TIMES A DAY
     Route: 048
     Dates: start: 20151223
  27. FIORICET [Concomitant]
     Active Substance: ACETAMINOPHEN\BUTALBITAL\CAFFEINE
     Dates: end: 2016
  28. ZOLPIDEM [Concomitant]
     Active Substance: ZOLPIDEM\ZOLPIDEM TARTRATE
     Dates: end: 2016
  29. MELPHALAN [Suspect]
     Active Substance: MELPHALAN
     Route: 042
     Dates: start: 20151205, end: 20151205
  30. CHOLECALCIFEROL [Concomitant]
     Active Substance: CHOLECALCIFEROL
     Dates: end: 2016
  31. MEDROXYPROGESTERONE [Concomitant]
     Active Substance: MEDROXYPROGESTERONE
     Route: 048
     Dates: start: 20151223
  32. ACTIGALL [Concomitant]
     Active Substance: URSODIOL
     Route: 048
  33. PROVERA [Concomitant]
     Active Substance: MEDROXYPROGESTERONE ACETATE

REACTIONS (5)
  - Venous thrombosis [Recovered/Resolved]
  - Embolism [Recovered/Resolved]
  - Limb discomfort [Recovered/Resolved]
  - Swelling [Recovered/Resolved]
  - Thrombophlebitis septic [Recovered/Resolved]

NARRATIVE: CASE EVENT DATE: 20160107
